FAERS Safety Report 11519154 (Version 2)
Quarter: 2015Q4

REPORT INFORMATION
  Report Type: Spontaneous
  Country: FR (occurrence: FR)
  Receive Date: 20150917
  Receipt Date: 20151230
  Transmission Date: 20160304
  Serious: Yes (Other)
  Sender: FDA-Public Use
  Company Number: FR-BAXTER-2015BAX050233

PATIENT
  Age: 8 Month
  Sex: Male
  Weight: 8.17 kg

DRUGS (17)
  1. VINCRISTINE HOSPIRA [Suspect]
     Active Substance: VINCRISTINE
     Dosage: 2 MG/ 2 ML STRENGTH, 20 ML INFUSION, START OF COURSE 3
     Route: 042
     Dates: start: 20151029
  2. ENDOXAN 500 MG, POUDRE POUR SOLUTION INJECTABLE [Suspect]
     Active Substance: CYCLOPHOSPHAMIDE
     Indication: BRAIN NEOPLASM
     Dosage: 100 ML INFUSION, START OF COURSE 3
     Route: 042
     Dates: start: 20150820, end: 20150820
  3. L-THYROXINE [Concomitant]
     Active Substance: LEVOTHYROXINE
     Indication: PRODUCT USED FOR UNKNOWN INDICATION
     Dosage: LONG-TERM THERAPY
     Route: 065
  4. ZOPHREN [Concomitant]
     Active Substance: ONDANSETRON
     Indication: VOMITING
     Dosage: LONG-TERM THERAPY POST CHEMOTHERAPY
     Route: 065
  5. GLUCOSE 5 % VIAFLO, SOLUTION POUR PERFUSION [Suspect]
     Active Substance: DEXTROSE
     Indication: MEDICATION DILUTION
     Dosage: START OF COURSE 3
     Route: 042
     Dates: start: 20150820, end: 20150820
  6. VINCRISTINE HOSPIRA [Suspect]
     Active Substance: VINCRISTINE
     Indication: BRAIN NEOPLASM
     Dosage: 2 MG/ 2 ML STRENGTH, 20 ML INFUSION, START OF COURSE 3
     Route: 042
     Dates: start: 20150820, end: 20150820
  7. MOTILIUM [Concomitant]
     Active Substance: DOMPERIDONE
     Indication: VOMITING
     Dosage: LONG-TERM THERAPY POST CHEMOTHERAPY
     Route: 065
  8. CISPLATIN. [Suspect]
     Active Substance: CISPLATIN
     Indication: BRAIN NEOPLASM
     Dosage: START OF COURSE 2
     Route: 065
     Dates: start: 20150728
  9. CHLORURE DE SODIUM 0.9% VIAFLO, SOLUTION POUR PERFUSION [Suspect]
     Active Substance: SODIUM CHLORIDE
     Indication: MEDICATION DILUTION
     Dosage: START OF COURSE 3
     Route: 042
     Dates: start: 20150820, end: 20150820
  10. ENDOXAN 500 MG, POUDRE POUR SOLUTION INJECTABLE [Suspect]
     Active Substance: CYCLOPHOSPHAMIDE
     Dosage: 100 ML INFUSION, START OF COURSE 3
     Route: 042
     Dates: start: 20151029
  11. CARBOPLATINE [Suspect]
     Active Substance: CARBOPLATIN
     Indication: BRAIN NEOPLASM
     Dosage: START OF COURSE 1
     Route: 065
     Dates: start: 20150702
  12. BACTRIM [Concomitant]
     Active Substance: SULFAMETHOXAZOLE\TRIMETHOPRIM
     Indication: PRODUCT USED FOR UNKNOWN INDICATION
     Dosage: LONG-TERM THERAPY
     Route: 065
  13. HYDROCORTISONE. [Concomitant]
     Active Substance: HYDROCORTISONE
     Indication: PRODUCT USED FOR UNKNOWN INDICATION
     Dosage: LONG-TERM THERAPY
     Route: 065
  14. CELLTOP 25 MG, CAPSULE [Suspect]
     Active Substance: ETOPOSIDE
     Indication: BRAIN NEOPLASM
     Dosage: START OF COURSE 2
     Route: 065
     Dates: start: 20150728
  15. PROCARBAZINE [Suspect]
     Active Substance: PROCARBAZINE
     Indication: BRAIN NEOPLASM
     Dosage: START OF COURSE 1
     Route: 065
     Dates: start: 20150702
  16. ZOPHREN [Concomitant]
     Active Substance: ONDANSETRON
     Indication: NAUSEA
  17. MOTILIUM [Concomitant]
     Active Substance: DOMPERIDONE
     Indication: NAUSEA

REACTIONS (7)
  - Hypotonia [Recovered/Resolved]
  - Head circumference abnormal [Recovered/Resolved]
  - Somnolence [Recovered/Resolved]
  - Miosis [Recovered/Resolved]
  - Vomiting projectile [Recovered/Resolved]
  - Malaise [Recovered/Resolved]
  - Hyponatraemia [Recovered/Resolved]

NARRATIVE: CASE EVENT DATE: 20150820
